FAERS Safety Report 10730694 (Version 5)
Quarter: 2017Q1

REPORT INFORMATION
  Report Type: Report from Study
  Country: US (occurrence: US)
  Receive Date: 20150122
  Receipt Date: 20170201
  Transmission Date: 20170428
  Serious: Yes (Death, Hospitalization, Other)
  Sender: FDA-Public Use
  Company Number: US-ARIAD PHARMACEUTICALS, INC-2015US004424

PATIENT
  Age: 47 Year
  Sex: Female

DRUGS (5)
  1. ICLUSIG [Suspect]
     Active Substance: PONATINIB
     Indication: CHRONIC MYELOID LEUKAEMIA
     Dosage: 15 MG, QD
     Route: 048
     Dates: start: 20140414
  2. ICLUSIG [Suspect]
     Active Substance: PONATINIB
     Dosage: 15 MG, QD
     Route: 048
  3. ICLUSIG [Suspect]
     Active Substance: PONATINIB
     Dosage: 15 MG, QD
     Route: 048
  4. ICLUSIG [Suspect]
     Active Substance: PONATINIB
     Dosage: 15 MG, QD
     Route: 048
  5. ICLUSIG [Suspect]
     Active Substance: PONATINIB
     Dosage: 15 MG, QD
     Route: 048

REACTIONS (12)
  - Viral infection [Recovered/Resolved]
  - Pruritus [Not Recovered/Not Resolved]
  - Surgery [Recovered/Resolved]
  - Abdominal discomfort [Unknown]
  - Urinary tract infection [Recovered/Resolved]
  - Clostridium difficile infection [Recovered/Resolved]
  - Pancreatitis [Not Recovered/Not Resolved]
  - Death [Fatal]
  - Cholelithiasis [Recovered/Resolved]
  - Dehydration [Recovered/Resolved]
  - Vomiting [Unknown]
  - Seizure [Unknown]

NARRATIVE: CASE EVENT DATE: 20150110
